FAERS Safety Report 6521509-0 (Version None)
Quarter: 2009Q4

REPORT INFORMATION
  Report Type: 
  Country: None (occurrence: None)
  Receive Date: 20091230
  Receipt Date: 20091221
  Transmission Date: 20100525
  Serious: Yes (Other)
  Sender: FDA-Public Use
  Company Number: JP-ASTRAZENECA-2009SE32079

PATIENT
  Age: 80 Year
  Sex: Male
  Weight: 58 kg

DRUGS (4)
  1. CRESTOR [Suspect]
     Indication: DYSLIPIDAEMIA
     Route: 048
     Dates: start: 20071220, end: 20091020
  2. NU-LOTAN [Concomitant]
     Indication: HYPERTENSION
     Route: 048
     Dates: start: 20071220, end: 20090712
  3. IRBETAN [Concomitant]
     Indication: HYPERTENSION
     Route: 048
     Dates: start: 20090713
  4. AMLODIN [Concomitant]
     Indication: HYPERTENSION
     Route: 048
     Dates: start: 20091015

REACTIONS (1)
  - HYPERAMYLASAEMIA [None]
